FAERS Safety Report 4811764-7 (Version None)
Quarter: 2005Q4

REPORT INFORMATION
  Report Type: 
  Country: None (occurrence: None)
  Receive Date: 20051028
  Receipt Date: 20051024
  Transmission Date: 20060501
  Serious: Yes (Other)
  Sender: FDA-Public Use
  Company Number: GB-BOEHRINGER INGELHEIM PHARMACEUTICALS, INC.-2005-BP-18845YA

PATIENT
  Age: 74 Year
  Sex: Male

DRUGS (6)
  1. FLOMAX [Suspect]
     Route: 048
  2. FOSINOPRIL [Concomitant]
     Route: 048
  3. ATENOLOL [Concomitant]
     Route: 048
  4. BENDROFLUAZIDE [Concomitant]
     Route: 048
  5. CIMETIDINE [Concomitant]
     Route: 048
  6. AMLODIPINE [Concomitant]
     Route: 048

REACTIONS (2)
  - EYE SWELLING [None]
  - IRIDOCELE [None]
